FAERS Safety Report 24849052 (Version 8)
Quarter: 2025Q3

REPORT INFORMATION
  Report Type: Spontaneous
  Country: US (occurrence: US)
  Receive Date: 20250116
  Receipt Date: 20250808
  Transmission Date: 20251020
  Serious: No
  Sender: ALEXION PHARMACEUTICALS
  Company Number: US-AstraZeneca-CH-00786222AP

PATIENT
  Sex: Female

DRUGS (2)
  1. AIRSUPRA [Suspect]
     Active Substance: ALBUTEROL SULFATE\BUDESONIDE
     Route: 065
  2. BREZTRI [Concomitant]
     Active Substance: BUDESONIDE\FORMOTEROL\GLYCOPYRROLATE
     Route: 065

REACTIONS (4)
  - Asthma [Unknown]
  - Wrong technique in device usage process [Unknown]
  - Device malfunction [Unknown]
  - Device delivery system issue [Unknown]
